FAERS Safety Report 5347276-4 (Version None)
Quarter: 2007Q2

REPORT INFORMATION
  Report Type: 
  Country: None (occurrence: None)
  Receive Date: 20070606
  Receipt Date: 20070524
  Transmission Date: 20071010
  Serious: Yes (Hospitalization, Other)
  Sender: FDA-Public Use
  Company Number: PHFR2007GB01092

PATIENT
  Age: 15 Year
  Sex: Female
  Weight: 38.095 kg

DRUGS (1)
  1. RITALIN [Suspect]
     Indication: ATTENTION DEFICIT/HYPERACTIVITY DISORDER
     Dosage: OVERDOSE
     Route: 065
     Dates: start: 20070303, end: 20070303

REACTIONS (3)
  - INTENTIONAL OVERDOSE [None]
  - MYDRIASIS [None]
  - TACHYCARDIA [None]
